FAERS Safety Report 18454201 (Version 1)
Quarter: 2020Q4

REPORT INFORMATION
  Report Type: Spontaneous
  Country: FR (occurrence: FR)
  Receive Date: 20201102
  Receipt Date: 20201102
  Transmission Date: 20210114
  Serious: Yes (Other)
  Sender: FDA-Public Use
  Company Number: FR-JNJFOC-20201045246

PATIENT
  Sex: Female

DRUGS (1)
  1. TRAMADOL/APAP [Suspect]
     Active Substance: ACETAMINOPHEN\TRAMADOL
     Indication: TOOTHACHE
     Dosage: UNK
     Route: 065

REACTIONS (7)
  - Feeling cold [Unknown]
  - Muscle tightness [Unknown]
  - Vomiting [Unknown]
  - Dizziness [Unknown]
  - Asthenia [Unknown]
  - Tremor [Unknown]
  - Drug hypersensitivity [Unknown]
